FAERS Safety Report 6502566-4 (Version None)
Quarter: 2009Q4

REPORT INFORMATION
  Report Type: 
  Country: None (occurrence: None)
  Receive Date: 20091127
  Receipt Date: 20090811
  Transmission Date: 20100525
  Serious: No
  Sender: FDA-Public Use
  Company Number: 001512

PATIENT
  Sex: Female
  Weight: 102.2 kg

DRUGS (6)
  1. LACOSAMIDE [Suspect]
     Dosage: (100 MG BID ORAL)
     Route: 048
     Dates: start: 20090725
  2. OXCARBAZEPINE [Concomitant]
  3. TOPIRAMATE [Concomitant]
  4. ADVAIR [Concomitant]
  5. TYLENOL (CAPLET) [Concomitant]
  6. MULTIVITAMIN /00831701/ [Concomitant]

REACTIONS (3)
  - DIPLOPIA [None]
  - DIZZINESS [None]
  - NAUSEA [None]
